FAERS Safety Report 7022292-5 (Version None)
Quarter: 2010Q3

REPORT INFORMATION
  Report Type: 
  Country: None (occurrence: None)
  Receive Date: 20100928
  Receipt Date: 20100914
  Transmission Date: 20110219
  Serious: Yes (Other)
  Sender: FDA-Public Use
  Company Number: TRP_07256_2010

PATIENT

DRUGS (2)
  1. RIBAVIRIN [Suspect]
     Indication: HEPATITIS C
     Dosage: (1200 MG, DAILY)
  2. INTERFERON ALFA-2A (INTERFERON ALFA-2A) [Suspect]
     Indication: HEPATITIS C
     Dosage: (3 MIU SUBCUTANEOUS)
     Route: 058

REACTIONS (46)
  - ALOPECIA [None]
  - ALOPECIA AREATA [None]
  - ANGER [None]
  - APHTHOUS STOMATITIS [None]
  - BURNING SENSATION [None]
  - CHEILITIS [None]
  - CHLOASMA [None]
  - CONDITION AGGRAVATED [None]
  - DECREASED APPETITE [None]
  - DECREASED INTEREST [None]
  - DEPRESSION [None]
  - DERMATITIS CONTACT [None]
  - DRY MOUTH [None]
  - DYSGEUSIA [None]
  - ECZEMA [None]
  - GLOSSITIS [None]
  - HAIR COLOUR CHANGES [None]
  - HEADACHE [None]
  - HOSTILITY [None]
  - HYPERTRICHOSIS [None]
  - INFLUENZA LIKE ILLNESS [None]
  - INJECTION SITE ERYTHEMA [None]
  - INJECTION SITE INDURATION [None]
  - INJECTION SITE PRURITUS [None]
  - INJECTION SITE REACTION [None]
  - IRRITABILITY [None]
  - LICHEN PLANUS [None]
  - MALAISE [None]
  - MEMORY IMPAIRMENT [None]
  - METAL POISONING [None]
  - NAIL PIGMENTATION [None]
  - ONYCHOCLASIS [None]
  - ORAL DISCOMFORT [None]
  - PAIN [None]
  - PHOTOSENSITIVITY REACTION [None]
  - PIGMENTATION DISORDER [None]
  - PRURITUS GENERALISED [None]
  - PSORIASIS [None]
  - PSYCHOTIC DISORDER [None]
  - SEBORRHOEIC KERATOSIS [None]
  - SKIN DISCOLOURATION [None]
  - THERAPEUTIC RESPONSE UNEXPECTED [None]
  - TONGUE PIGMENTATION [None]
  - TRICHOMEGALY [None]
  - URTICARIA [None]
  - WEIGHT DECREASED [None]
